FAERS Safety Report 7829018-3 (Version None)
Quarter: 2011Q4

REPORT INFORMATION
  Report Type: 
  Country: None (occurrence: None)
  Receive Date: 20111020
  Receipt Date: 20111013
  Transmission Date: 20120403
  Serious: Yes (Other)
  Sender: FDA-Public Use
  Company Number: RU-ABBOTT-11P-251-0866091-00

PATIENT
  Age: 26 Year
  Sex: Male

DRUGS (2)
  1. DEPAKINE CHRONOSPHERE [Suspect]
     Indication: MYOCLONIC EPILEPSY
     Route: 048
     Dates: start: 20110901, end: 20110910
  2. THIOPENTAL SODIUM [Concomitant]
     Indication: PRODUCT USED FOR UNKNOWN INDICATION
     Dates: start: 20110901

REACTIONS (4)
  - MOTOR DYSFUNCTION [None]
  - HEPATITIS [None]
  - STUPOR [None]
  - PANCREATITIS [None]
